FAERS Safety Report 17117998 (Version 2)
Quarter: 2020Q2

REPORT INFORMATION
  Report Type: Spontaneous
  Country: US (occurrence: US)
  Receive Date: 20191205
  Receipt Date: 20200611
  Transmission Date: 20200713
  Serious: Yes (Other)
  Sender: FDA-Public Use
  Company Number: US-SA-2019SA335337

PATIENT

DRUGS (5)
  1. NEOSAR [Concomitant]
     Active Substance: CYCLOPHOSPHAMIDE
     Indication: BREAST CANCER FEMALE
     Dosage: UNK
     Route: 065
  2. CYTOXAN [Concomitant]
     Active Substance: CYCLOPHOSPHAMIDE
     Dosage: UNK
     Route: 065
     Dates: start: 20100825, end: 20100825
  3. TAXOTERE [Suspect]
     Active Substance: DOCETAXEL
     Dosage: 20 MG, Q3W
     Route: 042
     Dates: start: 20100825, end: 20100825
  4. CYTOXAN [Concomitant]
     Active Substance: CYCLOPHOSPHAMIDE
     Indication: BREAST CANCER FEMALE
     Dosage: UNK
     Route: 065
     Dates: start: 20100622, end: 20100622
  5. TAXOTERE [Suspect]
     Active Substance: DOCETAXEL
     Indication: BREAST CANCER FEMALE
     Dosage: 20 MG, Q3W
     Route: 042
     Dates: start: 20100622, end: 20100622

REACTIONS (6)
  - Impaired quality of life [Unknown]
  - Pain [Unknown]
  - Emotional distress [Unknown]
  - Psychological trauma [Unknown]
  - Alopecia [Recovering/Resolving]
  - Anxiety [Unknown]

NARRATIVE: CASE EVENT DATE: 20100715
